FAERS Safety Report 5218108-X (Version None)
Quarter: 2007Q1

REPORT INFORMATION
  Report Type: 
  Country: None (occurrence: None)
  Receive Date: 20061130
  Receipt Date: 20060901
  Transmission Date: 20070707
  Serious: Yes (Hospitalization)
  Sender: FDA-Public Use
  Company Number: US200609001909

PATIENT
  Age: 56 Year
  Sex: Male
  Weight: 113.4 kg

DRUGS (3)
  1. ZYPREXA [Suspect]
     Dates: start: 20030701, end: 20040701
  2. DIVALPROEX SODIUM [Concomitant]
  3. PAXIL [Concomitant]

REACTIONS (2)
  - CONVULSION [None]
  - DIABETES MELLITUS [None]
